FAERS Safety Report 7817418 (Version 3)
Quarter: 2013Q3

REPORT INFORMATION
  Report Type: Spontaneous
  Country: ES (occurrence: ES)
  Receive Date: 20110217
  Receipt Date: 20130924
  Transmission Date: 20140515
  Serious: Yes (Other)
  Sender: FDA-Public Use
  Company Number: ES-JNJFOC-20110204492

PATIENT
  Sex: Female

DRUGS (4)
  1. STELARA [Suspect]
     Indication: FOETAL EXPOSURE DURING PREGNANCY
     Route: 015
  2. METHYLPREDNISOLONE [Suspect]
     Indication: PSORIASIS
     Route: 015
  3. CICLOSPORIN [Suspect]
     Indication: PSORIASIS
     Route: 015
  4. POLARAMIN [Suspect]
     Indication: PSORIASIS
     Route: 015

REACTIONS (3)
  - Atrioventricular septal defect [Recovered/Resolved]
  - Premature baby [Recovered/Resolved]
  - Right aortic arch [Recovered/Resolved]
